FAERS Safety Report 18143932 (Version 3)
Quarter: 2020Q3

REPORT INFORMATION
  Report Type: Spontaneous
  Country: US (occurrence: US)
  Receive Date: 20200813
  Receipt Date: 20200918
  Transmission Date: 20201103
  Serious: No
  Sender: FDA-Public Use
  Company Number: US-ASTRAZENECA-2020SE93701

PATIENT
  Sex: Female
  Weight: 52.2 kg

DRUGS (6)
  1. SIMVASTATIN. [Concomitant]
     Active Substance: SIMVASTATIN
  2. PLAVIX [Concomitant]
     Active Substance: CLOPIDOGREL BISULFATE
  3. SYMBICORT [Suspect]
     Active Substance: BUDESONIDE\FORMOTEROL FUMARATE DIHYDRATE
     Indication: CHRONIC OBSTRUCTIVE PULMONARY DISEASE
     Dosage: UNKNOWN UNKNOWN
     Route: 055
  4. BABY ASPIRIN [Concomitant]
     Active Substance: ASPIRIN
  5. SYMBICORT [Suspect]
     Active Substance: BUDESONIDE\FORMOTEROL FUMARATE DIHYDRATE
     Indication: CHRONIC OBSTRUCTIVE PULMONARY DISEASE
     Dosage: 160MCG/4.5MCG, GENERIC BUDESONIDE AND FORMOTEROL AEROSOL UNKNOWN
     Route: 055
  6. NYSTATIN. [Concomitant]
     Active Substance: NYSTATIN

REACTIONS (6)
  - Incorrect dose administered by device [Unknown]
  - Taste disorder [Unknown]
  - Oral fungal infection [Unknown]
  - Intentional device misuse [Not Recovered/Not Resolved]
  - Device delivery system issue [Unknown]
  - Glossitis [Unknown]
